FAERS Safety Report 19058858 (Version 1)
Quarter: 2021Q1

REPORT INFORMATION
  Report Type: Spontaneous
  Country: IT (occurrence: IT)
  Receive Date: 20210325
  Receipt Date: 20210325
  Transmission Date: 20210420
  Serious: Yes (Other)
  Sender: FDA-Public Use
  Company Number: IT-AMGEN-ITASP2021041937

PATIENT

DRUGS (1)
  1. FILGRASTIM [Suspect]
     Active Substance: FILGRASTIM
     Indication: PROPHYLAXIS
     Dosage: UNK
     Route: 065

REACTIONS (9)
  - Asthenia [Unknown]
  - Off label use [Unknown]
  - Psoriasis [Unknown]
  - Urinary tract infection [Unknown]
  - Decreased appetite [Unknown]
  - Hepatic cirrhosis [Unknown]
  - Pyrexia [Unknown]
  - Alopecia [Unknown]
  - Erythema [Unknown]
